FAERS Safety Report 25004680 (Version 1)
Quarter: 2025Q1

REPORT INFORMATION
  Report Type: Spontaneous
  Country: NO (occurrence: NO)
  Receive Date: 20250224
  Receipt Date: 20250224
  Transmission Date: 20250408
  Serious: Yes (Other)
  Sender: PFIZER
  Company Number: NO-PFIZER INC-PV202500021029

PATIENT
  Age: 75 Year

DRUGS (4)
  1. LORLATINIB [Suspect]
     Active Substance: LORLATINIB
     Indication: Non-small cell lung cancer
     Dosage: 50 MG, 1X/DAY
     Dates: start: 202406, end: 202407
  2. LORLATINIB [Suspect]
     Active Substance: LORLATINIB
     Dosage: 75 MG, 1X/DAY
     Dates: start: 202407, end: 202408
  3. LORLATINIB [Suspect]
     Active Substance: LORLATINIB
     Dosage: 50 MG, 1X/DAY
     Dates: start: 202408
  4. EZETIMIBE [Concomitant]
     Active Substance: EZETIMIBE

REACTIONS (7)
  - IgA nephropathy [Unknown]
  - Apathy [Unknown]
  - Dependent personality disorder [Unknown]
  - Speech disorder [Unknown]
  - Slow speech [Unknown]
  - Coordination abnormal [Unknown]
  - Fatigue [Unknown]

NARRATIVE: CASE EVENT DATE: 20240801
